FAERS Safety Report 22062245 (Version 4)
Quarter: 2024Q1

REPORT INFORMATION
  Report Type: Spontaneous
  Country: GB (occurrence: GB)
  Receive Date: 20230304
  Receipt Date: 20240104
  Transmission Date: 20240410
  Serious: Yes (Death, Other)
  Sender: FDA-Public Use
  Company Number: GB-JNJFOC-20220956368

PATIENT

DRUGS (2)
  1. IMBRUVICA [Suspect]
     Active Substance: IBRUTINIB
     Indication: Mantle cell lymphoma
     Route: 048
  2. RITUXIMAB [Suspect]
     Active Substance: RITUXIMAB
     Indication: Mantle cell lymphoma
     Route: 065

REACTIONS (13)
  - Cardiac failure congestive [Fatal]
  - Escherichia infection [Fatal]
  - Atrial fibrillation [Unknown]
  - Toxicity to various agents [Unknown]
  - COVID-19 [Fatal]
  - Myelosuppression [Unknown]
  - Cerebrovascular accident [Fatal]
  - Haemorrhage [Unknown]
  - Infection [Fatal]
  - Small intestinal obstruction [Unknown]
  - Neurotoxicity [Unknown]
  - Pleural effusion [Unknown]
  - Hepatic function abnormal [Unknown]
